FAERS Safety Report 6444156-8 (Version None)
Quarter: 2009Q4

REPORT INFORMATION
  Report Type: 
  Country: None (occurrence: None)
  Receive Date: 20091118
  Receipt Date: 20091110
  Transmission Date: 20100525
  Serious: Yes (Other)
  Sender: FDA-Public Use
  Company Number: US-JNJFOC-20091103719

PATIENT
  Sex: Male
  Weight: 113.4 kg

DRUGS (13)
  1. DURAGESIC-100 [Suspect]
     Route: 062
  2. DURAGESIC-100 [Suspect]
     Indication: BACK PAIN
     Route: 062
  3. DURAGESIC-100 [Suspect]
     Route: 062
  4. KLONOPIN [Concomitant]
     Route: 048
  5. BENADRYL [Concomitant]
     Route: 048
  6. FLONASE [Concomitant]
     Route: 048
  7. UNKNOWN MEDICATION [Concomitant]
     Route: 065
  8. CYMBALTA [Concomitant]
     Route: 048
  9. VICODIN [Concomitant]
     Indication: PAIN
     Route: 048
  10. AMBIEN [Concomitant]
     Indication: SLEEP DISORDER
     Route: 048
  11. PHENERGAN HCL [Concomitant]
     Route: 048
  12. NEXIUM [Concomitant]
     Indication: GASTRIC DISORDER
     Route: 048
  13. DEXAMETHASONE [Concomitant]
     Route: 048

REACTIONS (3)
  - ABNORMAL LOSS OF WEIGHT [None]
  - INADEQUATE ANALGESIA [None]
  - INAPPROPRIATE SCHEDULE OF DRUG ADMINISTRATION [None]
